FAERS Safety Report 5801374-7 (Version None)
Quarter: 2008Q3

REPORT INFORMATION
  Report Type: 
  Country: None (occurrence: None)
  Receive Date: 20080703
  Receipt Date: 20080703
  Transmission Date: 20090109
  Serious: Yes (Other)
  Sender: FDA-Public Use
  Company Number: None

PATIENT
  Age: 47 Year
  Sex: Female
  Weight: 48.9885 kg

DRUGS (3)
  1. ZOLPIDEM TARTRATE [Suspect]
     Indication: SLEEP APNOEA SYNDROME
     Dosage: 10 MG 1 AT BEDTIME ORAL
     Route: 048
     Dates: start: 20000101, end: 20080101
  2. LEVOTHYROXINE SODIUM [Concomitant]
  3. LEXAPRO [Concomitant]

REACTIONS (2)
  - AMNESIA [None]
  - VICTIM OF SEXUAL ABUSE [None]
